FAERS Safety Report 5126362-8 (Version None)
Quarter: 2006Q4

REPORT INFORMATION
  Report Type: 
  Country: None (occurrence: None)
  Receive Date: 20061010
  Receipt Date: 20060925
  Transmission Date: 20070319
  Serious: Yes (Hospitalization)
  Sender: FDA-Public Use
  Company Number: 2006S1009038

PATIENT
  Age: 74 Year
  Sex: Male
  Weight: 194 kg

DRUGS (24)
  1. SU-011, 248 (SUNITINIB MALATE) [Suspect]
     Indication: RENAL CELL CARCINOMA STAGE UNSPECIFIED
     Dosage: 37.5 MG;QD;PO
     Route: 048
     Dates: start: 20051026
  2. OXYCODONE HCL [Concomitant]
  3. METFORMIN HCL [Concomitant]
  4. INSULIN GLARGINE [Concomitant]
  5. ATORVASTATIN CALCIUM [Concomitant]
  6. EZETIMIBE [Concomitant]
  7. RAMIPRIL [Concomitant]
  8. ATENOLOL [Concomitant]
  9. TAMSULOSIN HCL [Concomitant]
  10. FINASTERIDE [Concomitant]
  11. RANITIDINE [Concomitant]
  12. MONTELUKAST [Concomitant]
  13. SALMETEROL XINAFOATE [Concomitant]
  14. FLUTICASONE PROPIONATE [Concomitant]
  15. URSODEOXYCHOLIC ACID [Concomitant]
  16. MIRTAZAPINE [Concomitant]
  17. DOCUSATE SODIUM [Concomitant]
  18. HYDROCODONE BITARTRATE [Suspect]
     Dosage: 10 MG;HS;PO
     Route: 048
     Dates: start: 20050801, end: 20051221
  19. DIAZEPAM [Suspect]
     Dosage: 5 MG;QD;PO
     Route: 048
     Dates: start: 20050101, end: 20051221
  20. DIAZEPAM [Suspect]
     Dosage: 5 MG;QD;PO
     Route: 048
     Dates: start: 20051221
  21. AMBIEN [Suspect]
     Dosage: 10 MG;HS;PO; 5 MG;HS;PO
     Route: 048
     Dates: start: 20050101, end: 20051221
  22. AMBIEN [Suspect]
     Dosage: 10 MG;HS;PO; 5 MG;HS;PO
     Route: 048
     Dates: start: 20051221
  23. DOXEPIN HYDROCHLORIDE [Suspect]
     Dosage: 20 MG;HS;PO; 10 MG;HS;PO
     Route: 048
     Dates: start: 20050101, end: 20051221
  24. DOXEPIN HYDROCHLORIDE [Suspect]
     Dosage: 20 MG;HS;PO; 10 MG;HS;PO
     Route: 048
     Dates: start: 20051221

REACTIONS (9)
  - CHILLS [None]
  - CONFUSIONAL STATE [None]
  - DRUG TOXICITY [None]
  - ENCEPHALOPATHY [None]
  - HYPOTENSION [None]
  - MENTAL IMPAIRMENT [None]
  - METABOLIC DISORDER [None]
  - PYREXIA [None]
  - SOMNOLENCE [None]
